FAERS Safety Report 7328076-2 (Version None)
Quarter: 2011Q1

REPORT INFORMATION
  Report Type: 
  Country: None (occurrence: None)
  Receive Date: 20110303
  Receipt Date: 20110223
  Transmission Date: 20110831
  Serious: Yes (Other)
  Sender: FDA-Public Use
  Company Number: US-JNJFOC-20110107551

PATIENT
  Sex: Male
  Weight: 62.6 kg

DRUGS (1)
  1. REMICADE [Suspect]
     Indication: CROHN'S DISEASE
     Route: 042

REACTIONS (5)
  - CROHN'S DISEASE [None]
  - PERIRECTAL ABSCESS [None]
  - ANORECTAL STENOSIS [None]
  - DRUG EFFECT DECREASED [None]
  - ANAL FISTULA [None]
